FAERS Safety Report 5226904-8 (Version None)
Quarter: 2007Q1

REPORT INFORMATION
  Report Type: 
  Country: None (occurrence: None)
  Receive Date: 20070130
  Receipt Date: 20070122
  Transmission Date: 20070707
  Serious: Yes (Hospitalization)
  Sender: FDA-Public Use
  Company Number: GXKR2007NL01044

PATIENT
  Age: 75 Year
  Sex: Female

DRUGS (10)
  1. AMIODARONE (NGX)(AMIODARONE) TABLET [Suspect]
     Indication: DRUG USE FOR UNKNOWN INDICATION
     Dosage: 200 MG, QD, ORAL
     Route: 048
     Dates: start: 20000914, end: 20061201
  2. PRAVASTATIN [Suspect]
     Indication: HYPERCHOLESTEROLAEMIA
     Dosage: 40 MG, QD, ORAL
     Route: 048
     Dates: start: 20061017, end: 20061101
  3. VERAPAMIL [Suspect]
     Indication: DRUG USE FOR UNKNOWN INDICATION
     Dosage: 240 MG, BID, ORAL
     Route: 048
     Dates: start: 20061017
  4. NOVOMIX 30 (INSULIN ASPART, PROTAMINE INSULIN ASPART) [Concomitant]
  5. METFORMIN HCL [Concomitant]
  6. PHENPROCOUMON (PHENPROCOUMON) [Concomitant]
  7. HYDROCHLOROTHIAZIDE [Concomitant]
  8. LISINOPRIL [Concomitant]
  9. COZAAR [Concomitant]
  10. SIMVASTATIN [Concomitant]

REACTIONS (1)
  - THROMBOCYTOPENIA [None]
